FAERS Safety Report 4849422-5 (Version None)
Quarter: 2005Q4

REPORT INFORMATION
  Report Type: 
  Country: None (occurrence: None)
  Receive Date: 20051207
  Receipt Date: 20051128
  Transmission Date: 20060501
  Serious: Yes (Hospitalization)
  Sender: FDA-Public Use
  Company Number: 2005BI019465

PATIENT
  Age: 60 Year
  Sex: Male

DRUGS (6)
  1. AVONEX [Suspect]
     Indication: MULTIPLE SCLEROSIS
     Dosage: 30 UG;QW;IM
     Route: 030
     Dates: start: 20010322, end: 29950601
  2. AVONEX [Suspect]
     Dosage: 27 UG;QW;IM
     Route: 030
     Dates: start: 20050601, end: 20050704
  3. QUININE [Concomitant]
  4. AMBIEN [Concomitant]
  5. PEPCID [Concomitant]
  6. TYLENOL [Concomitant]

REACTIONS (4)
  - COORDINATION ABNORMAL [None]
  - INFLUENZA LIKE ILLNESS [None]
  - MULTIPLE SCLEROSIS RELAPSE [None]
  - MUSCLE SPASTICITY [None]
